FAERS Safety Report 7034954-4 (Version None)
Quarter: 2010Q4

REPORT INFORMATION
  Report Type: 
  Country: None (occurrence: None)
  Receive Date: 20101008
  Receipt Date: 20100426
  Transmission Date: 20110411
  Serious: Yes (Other)
  Sender: FDA-Public Use
  Company Number: US-BAYER-201010665NA

PATIENT
  Age: 33 Year
  Sex: Female
  Weight: 64 kg

DRUGS (2)
  1. YAZ [Suspect]
     Route: 048
     Dates: start: 20060901, end: 20070101
  2. YASMIN [Suspect]
     Indication: MIGRAINE
     Route: 065
     Dates: start: 20061017

REACTIONS (1)
  - PULMONARY EMBOLISM [None]
